FAERS Safety Report 12373556 (Version 2)
Quarter: 2016Q2

REPORT INFORMATION
  Report Type: Spontaneous
  Country: FR (occurrence: FR)
  Receive Date: 20160516
  Receipt Date: 20160629
  Transmission Date: 20160815
  Serious: Yes (Hospitalization)
  Sender: FDA-Public Use
  Company Number: PHHY2016FR066675

PATIENT
  Age: 35 Year
  Sex: Female

DRUGS (4)
  1. HYCAMTIN [Suspect]
     Active Substance: TOPOTECAN HYDROCHLORIDE
     Dosage: 4 MG, UNK
     Route: 042
     Dates: start: 20160324, end: 20160324
  2. ESCITALOPRAM [Concomitant]
     Active Substance: ESCITALOPRAM OXALATE
     Indication: PRODUCT USED FOR UNKNOWN INDICATION
     Route: 065
  3. CISPLATIN. [Suspect]
     Active Substance: CISPLATIN
     Indication: CHEMOTHERAPY
     Dosage: UNK
     Route: 065
     Dates: end: 201512
  4. HYCAMTIN [Suspect]
     Active Substance: TOPOTECAN HYDROCHLORIDE
     Indication: CERVIX CARCINOMA
     Dosage: UNK
     Route: 042

REACTIONS (6)
  - Vertigo [Recovered/Resolved]
  - Paraesthesia [Recovered/Resolved]
  - Photopsia [Recovered/Resolved]
  - Hypomagnesaemia [Recovered/Resolved]
  - Tinnitus [Recovered/Resolved]
  - Hypocalcaemia [Recovered/Resolved]

NARRATIVE: CASE EVENT DATE: 20160324
